FAERS Safety Report 9807292 (Version 1)
Quarter: 2014Q1

REPORT INFORMATION
  Report Type: Report from Study
  Country: US (occurrence: US)
  Receive Date: 20140110
  Receipt Date: 20140110
  Transmission Date: 20141002
  Serious: Yes (Death)
  Sender: FDA-Public Use
  Company Number: US-ROCHE-1331899

PATIENT
  Age: 58 Year
  Sex: Female

DRUGS (6)
  1. AVASTIN [Suspect]
     Indication: LUNG NEOPLASM MALIGNANT
     Route: 065
     Dates: start: 20111103
  2. GEMZAR [Concomitant]
     Route: 065
  3. CARBOPLATIN [Concomitant]
     Route: 065
  4. DECADRON [Concomitant]
     Route: 065
  5. ZOFRAN [Concomitant]
     Route: 065
  6. ALOXI [Concomitant]
     Route: 065

REACTIONS (1)
  - Death [Fatal]
